FAERS Safety Report 13875378 (Version 1)
Quarter: 2017Q3

REPORT INFORMATION
  Report Type: Report from Study
  Country: US (occurrence: US)
  Receive Date: 20170817
  Receipt Date: 20170817
  Transmission Date: 20171127
  Serious: No
  Sender: FDA-Public Use
  Company Number: US-AMGEN-USASL2017121906

PATIENT
  Age: 55 Year
  Sex: Female

DRUGS (1)
  1. ENBREL [Suspect]
     Active Substance: ETANERCEPT
     Indication: RHEUMATOID ARTHRITIS
     Dosage: 50 MG, QWK
     Route: 065
     Dates: start: 20170804

REACTIONS (8)
  - Swelling [Unknown]
  - Paranasal sinus hypersecretion [Unknown]
  - Feeling hot [Unknown]
  - Sneezing [Unknown]
  - Sputum discoloured [Not Recovered/Not Resolved]
  - Lymph node pain [Not Recovered/Not Resolved]
  - Pruritus generalised [Unknown]
  - Productive cough [Not Recovered/Not Resolved]

NARRATIVE: CASE EVENT DATE: 20170804
